FAERS Safety Report 20257247 (Version 2)
Quarter: 2022Q1

REPORT INFORMATION
  Report Type: Spontaneous
  Country: US (occurrence: None)
  Receive Date: 20211230
  Receipt Date: 20220224
  Transmission Date: 20220423
  Serious: Yes (Other)
  Sender: FDA-Public Use
  Company Number: US-ROCHE-2964567

PATIENT
  Sex: Male

DRUGS (1)
  1. XELODA [Suspect]
     Active Substance: CAPECITABINE
     Indication: Rectal cancer
     Route: 048
     Dates: start: 20211109

REACTIONS (12)
  - Mental disorder [Unknown]
  - Hypoaesthesia [Unknown]
  - Paraesthesia [Unknown]
  - Headache [Unknown]
  - Fatigue [Unknown]
  - Weight abnormal [Unknown]
  - Angina pectoris [Unknown]
  - Back pain [Unknown]
  - Dry skin [Unknown]
  - Glossodynia [Unknown]
  - Lethargy [Unknown]
  - Disturbance in attention [Unknown]
